FAERS Safety Report 23462508 (Version 1)
Quarter: 2024Q1

REPORT INFORMATION
  Report Type: Spontaneous
  Country: CZ (occurrence: CZ)
  Receive Date: 20240131
  Receipt Date: 20240131
  Transmission Date: 20240410
  Serious: Yes (Disabling, Other)
  Sender: FDA-Public Use
  Company Number: CZ-TEVA-VS-3141827

PATIENT
  Age: 52 Year
  Sex: Male

DRUGS (7)
  1. DASATINIB [Suspect]
     Active Substance: DASATINIB
     Indication: Chronic myeloid leukaemia
  2. DASATINIB [Suspect]
     Active Substance: DASATINIB
  3. VINBLASTINE [Suspect]
     Active Substance: VINBLASTINE
     Indication: Testicular seminoma (pure)
     Dosage: VEIP
  4. IMATINIB [Suspect]
     Active Substance: IMATINIB
     Indication: Chronic myeloid leukaemia
  5. ETOPOSIDE [Suspect]
     Active Substance: ETOPOSIDE
     Indication: Testicular seminoma (pure)
     Dosage: CEB
  6. ETOPOSIDE [Suspect]
     Active Substance: ETOPOSIDE
     Dosage: BEP
  7. ETOPOSIDE [Suspect]
     Active Substance: ETOPOSIDE
     Dosage: VEIP

REACTIONS (6)
  - Fatigue [Unknown]
  - Headache [Recovered/Resolved]
  - General physical health deterioration [Unknown]
  - Pain in extremity [Recovered/Resolved]
  - Diarrhoea [Unknown]
  - Toxicity to various agents [Unknown]
